FAERS Safety Report 14948638 (Version 1)
Quarter: 2018Q2

REPORT INFORMATION
  Report Type: Spontaneous
  Country: US (occurrence: US)
  Receive Date: 20180508
  Receipt Date: 20180508
  Transmission Date: 20180711
  Serious: Yes (Hospitalization)
  Sender: FDA-Public Use
  Company Number: None

PATIENT
  Age: 76 Year
  Sex: Male
  Weight: 121 kg

DRUGS (15)
  1. HYDROCODONE-ACETAMINOPHEN, 1 TAB DAILY [Concomitant]
  2. TAMSULOSIN, 0.4 MG DAILY [Concomitant]
     Dates: start: 20170821
  3. ALLOPURINOL, 100 MG DAILY [Concomitant]
     Dates: start: 20171018
  4. ROSUVASTATIN, 1 TAB DAILY [Concomitant]
     Dates: start: 20171129
  5. DUSTATERIDE, 0.5 MG DAILY [Concomitant]
  6. FERROUS SULFATE, 1 TAB DAILY [Concomitant]
     Dates: start: 20171212
  7. RENA-VITE, 1 TAB DAILY [Concomitant]
  8. VIT A/ VIT C/VIT E/ZINC/COPPER, 2 TABS DAILY [Concomitant]
  9. VITAMIN B-12, 1000 UG DAILY [Concomitant]
  10. SODIUM CITRATE-CITRIC ACID, 100 MG ORAL [Concomitant]
     Dates: start: 20171018
  11. FOLIC ACID, 400 UG, DAILY [Concomitant]
  12. RUXOLITINIB [Suspect]
     Active Substance: RUXOLITINIB
     Indication: CHRONIC MYELOID LEUKAEMIA
     Route: 048
     Dates: start: 20171026
  13. GLYCOLAX, 17 G DAILY [Concomitant]
     Dates: start: 20170909
  14. JANUVIA, 50 MG DAILY [Concomitant]
  15. VITAMIN B6, 100 MG DAILY [Concomitant]

REACTIONS (1)
  - Anaemia [None]

NARRATIVE: CASE EVENT DATE: 20180206
